FAERS Safety Report 18171459 (Version 1)
Quarter: 2020Q3

REPORT INFORMATION
  Report Type: Spontaneous
  Country: DE (occurrence: DE)
  Receive Date: 20200819
  Receipt Date: 20200819
  Transmission Date: 20201103
  Serious: Yes (Other)
  Sender: FDA-Public Use
  Company Number: DE-ANIPHARMA-2020-DE-000181

PATIENT
  Age: 71 Year
  Sex: Female

DRUGS (4)
  1. LORENIN [Concomitant]
     Active Substance: LORAZEPAM
     Route: 065
  2. ARIMIDEX [Suspect]
     Active Substance: ANASTROZOLE
     Indication: PRODUCT USED FOR UNKNOWN INDICATION
     Dosage: UNK / DOSE TEXT: ACCIDENTALLY TOOK A SECOND DOSE (1 TABLET OF 1MG)
     Route: 048
  3. STRUCTOMAX [Concomitant]
     Route: 065
  4. ROSUVASTATIN. [Concomitant]
     Active Substance: ROSUVASTATIN
     Route: 048

REACTIONS (5)
  - Vomiting [Unknown]
  - Breast inflammation [Unknown]
  - Tremor [Unknown]
  - Pyrexia [Unknown]
  - Wrong dose [Unknown]
